FAERS Safety Report 12093773 (Version 1)
Quarter: 2016Q1

REPORT INFORMATION
  Report Type: Spontaneous
  Country: US (occurrence: None)
  Receive Date: 20160218
  Receipt Date: 20160218
  Transmission Date: 20160526
  Serious: Yes (Life-Threatening, Hospitalization)
  Sender: FDA-Public Use
  Company Number: None

PATIENT
  Age: 84 Year
  Sex: Female

DRUGS (2)
  1. WARFARIN 5 MG [Suspect]
     Active Substance: WARFARIN
     Indication: PRODUCT USED FOR UNKNOWN INDICATION
     Dates: start: 20160122, end: 20160213
  2. AMLODIPINE [Concomitant]
     Active Substance: AMLODIPINE BESYLATE

REACTIONS (8)
  - Wrong drug administered [None]
  - International normalised ratio increased [None]
  - Peritoneal haemorrhage [None]
  - Vaccination site swelling [None]
  - Drug dispensing error [None]
  - Gingival bleeding [None]
  - Vaccination site haematoma [None]
  - Epistaxis [None]

NARRATIVE: CASE EVENT DATE: 20160214
